FAERS Safety Report 16326739 (Version 1)
Quarter: 2019Q2

REPORT INFORMATION
  Report Type: Spontaneous
  Country: GB (occurrence: GB)
  Receive Date: 20190517
  Receipt Date: 20190517
  Transmission Date: 20190711
  Serious: Yes (Other)
  Sender: FDA-Public Use
  Company Number: GB-TEVA-2019-GB-1050402

PATIENT
  Age: 4 Year
  Sex: Male
  Weight: 13 kg

DRUGS (6)
  1. LORATADINE. [Suspect]
     Active Substance: LORATADINE
     Route: 065
     Dates: start: 20190409
  2. FLUCLOXACILLIN [Concomitant]
     Active Substance: FLUCLOXACILLIN
     Dosage: FOR 7 DAYS
     Dates: start: 20190409
  3. CHLORPHENAMINE [Concomitant]
     Active Substance: CHLORPHENIRAMINE MALEATE
     Dosage: 4-6 HOURLY
     Dates: start: 20190411
  4. OLIVE OIL [Concomitant]
     Active Substance: OLIVE OIL
     Dosage: USE AS DIRECTED
     Dates: start: 20190409
  5. HYDROCORTISONE. [Concomitant]
     Active Substance: HYDROCORTISONE
     Dosage: AS DIRECTED
     Dates: start: 20190409
  6. CLARITHROMYCIN. [Concomitant]
     Active Substance: CLARITHROMYCIN
     Dates: start: 20190411

REACTIONS (2)
  - Urticaria [Recovering/Resolving]
  - Swelling [Unknown]

NARRATIVE: CASE EVENT DATE: 20190411
